FAERS Safety Report 16180236 (Version 2)
Quarter: 2020Q1

REPORT INFORMATION
  Report Type: Spontaneous
  Country: US (occurrence: US)
  Receive Date: 20190410
  Receipt Date: 20200227
  Transmission Date: 20200409
  Serious: Yes (Hospitalization, Other)
  Sender: FDA-Public Use
  Company Number: US-AMNEAL PHARMACEUTICALS-2019AMN00097

PATIENT
  Age: 5 Year
  Sex: Male

DRUGS (2)
  1. VIGABATRIN. [Suspect]
     Active Substance: VIGABATRIN
     Indication: EPILEPSY
     Dosage: UNK, 2X/DAY, TITRATION DOSING
     Route: 065
  2. VIGABATRIN. [Suspect]
     Active Substance: VIGABATRIN
     Dosage: 1500 MILLIGRAM, 2 /DAY
     Route: 048

REACTIONS (4)
  - Adverse event [Unknown]
  - Therapy cessation [Unknown]
  - Product dose omission [Unknown]
  - Seizure [Unknown]

NARRATIVE: CASE EVENT DATE: 201901
